FAERS Safety Report 13756913 (Version 1)
Quarter: 2017Q3

REPORT INFORMATION
  Report Type: Other
  Country: US (occurrence: US)
  Receive Date: 20170714
  Receipt Date: 20170714
  Transmission Date: 20171127
  Serious: Yes (Other)
  Sender: FDA-Public Use
  Company Number: US-THE PROACTIV LLC-2023396

PATIENT
  Age: 38 Year
  Sex: Male

DRUGS (6)
  1. PROACTIV PLUS COMPLEXION PERFECTING HYDRATOR [Suspect]
     Active Substance: SALICYLIC ACID
     Route: 061
     Dates: start: 20170424, end: 20170524
  2. RISPERIDONE. [Concomitant]
     Active Substance: RISPERIDONE
  3. PROACTIVPLUS SKIN SMOOTHING EXFOLIATOR [Suspect]
     Active Substance: BENZOYL PEROXIDE
     Indication: ACNE
     Route: 061
     Dates: start: 20170424, end: 20170524
  4. PROACTIV PLUS PORE TARGETING TREATMENT [Suspect]
     Active Substance: BENZOYL PEROXIDE
     Route: 061
     Dates: start: 20170424, end: 20170524
  5. PROACTIV SOLUTION OIL FREE MOISTURE SPF 15 MOISTURIZER [Suspect]
     Active Substance: OCTINOXATE\ZINC OXIDE
     Route: 061
     Dates: start: 20170424, end: 20170524
  6. COGENTIN [Concomitant]
     Active Substance: BENZTROPINE MESYLATE

REACTIONS (2)
  - Abscess [Recovering/Resolving]
  - Skin infection [Recovering/Resolving]

NARRATIVE: CASE EVENT DATE: 20170529
